FAERS Safety Report 26080725 (Version 1)
Quarter: 2025Q4

REPORT INFORMATION
  Report Type: Spontaneous
  Country: GB (occurrence: GB)
  Receive Date: 20251124
  Receipt Date: 20251124
  Transmission Date: 20260118
  Serious: Yes (Other)
  Sender: HIKMA
  Company Number: None

PATIENT
  Age: 77 Year
  Sex: Female

DRUGS (1)
  1. LEVOFLOXACIN [Suspect]
     Active Substance: LEVOFLOXACIN
     Indication: Pneumonia
     Dosage: UNKNOWN
     Route: 065
     Dates: start: 202509, end: 20250929

REACTIONS (7)
  - Hallucination, visual [Recovered/Resolved]
  - Feeling hot [Unknown]
  - Insomnia [Unknown]
  - Palpitations [Unknown]
  - Hallucination, auditory [Not Recovered/Not Resolved]
  - Nausea [Unknown]
  - Hypoaesthesia [Unknown]

NARRATIVE: CASE EVENT DATE: 20250901
